FAERS Safety Report 7425985-0 (Version None)
Quarter: 2011Q2

REPORT INFORMATION
  Report Type: 
  Country: None (occurrence: None)
  Receive Date: 20110420
  Receipt Date: 20110314
  Transmission Date: 20111010
  Serious: Yes (Hospitalization)
  Sender: FDA-Public Use
  Company Number: US-MYLANLABS-2011S1005388

PATIENT
  Sex: Male

DRUGS (1)
  1. FELODIPINE [Suspect]
     Route: 048
     Dates: start: 20100101

REACTIONS (1)
  - PARAESTHESIA [None]
